FAERS Safety Report 16462341 (Version 1)
Quarter: 2019Q2

REPORT INFORMATION
  Report Type: Spontaneous
  Country: US (occurrence: US)
  Receive Date: 20190621
  Receipt Date: 20190621
  Transmission Date: 20190711
  Serious: Yes (Other)
  Sender: FDA-Public Use
  Company Number: US-PFIZER INC-2019265173

PATIENT
  Age: 78 Year
  Sex: Female
  Weight: 79.38 kg

DRUGS (1)
  1. BOSULIF [Suspect]
     Active Substance: BOSUTINIB MONOHYDRATE
     Dosage: UNK

REACTIONS (3)
  - Urinary incontinence [Unknown]
  - Weight fluctuation [Unknown]
  - Memory impairment [Recovering/Resolving]
